FAERS Safety Report 8181562-8 (Version None)
Quarter: 2012Q1

REPORT INFORMATION
  Report Type: 
  Country: None (occurrence: None)
  Receive Date: 20120302
  Receipt Date: 20120224
  Transmission Date: 20120608
  Serious: Yes (Disabling, Other)
  Sender: FDA-Public Use
  Company Number: US-US-EMD SERONO, INC.-7113269

PATIENT
  Sex: Female

DRUGS (2)
  1. ACETAMINOPHEN ES [Concomitant]
     Indication: PREMEDICATION
  2. REBIF [Suspect]
     Indication: SECONDARY PROGRESSIVE MULTIPLE SCLEROSIS
     Route: 058
     Dates: start: 20041130

REACTIONS (5)
  - ANKLE FRACTURE [None]
  - SECONDARY PROGRESSIVE MULTIPLE SCLEROSIS [None]
  - INJECTION SITE ERYTHEMA [None]
  - NEUROGENIC BLADDER [None]
  - CYSTITIS [None]
